FAERS Safety Report 4366643-9 (Version None)
Quarter: 2004Q2

REPORT INFORMATION
  Report Type: 
  Country: None (occurrence: None)
  Receive Date: 20040524
  Receipt Date: 20040513
  Transmission Date: 20050107
  Serious: Yes (Hospitalization)
  Sender: FDA-Public Use
  Company Number: 2004014815

PATIENT
  Sex: Female

DRUGS (3)
  1. NEURONTIN [Suspect]
     Indication: SCIATICA
     Dosage: 1800 MG (DAILY), ORAL
     Route: 048
  2. ALL OTHER THERAPEUTIC PRODUCTS (ALL OTHER THERAPEUTIC PRODUCTS) [Suspect]
     Indication: ILL-DEFINED DISORDER
  3. VALPROATE SODIUM [Concomitant]

REACTIONS (3)
  - DISSOCIATION [None]
  - LOSS OF CONSCIOUSNESS [None]
  - MEDICATION ERROR [None]
